FAERS Safety Report 12403276 (Version 1)
Quarter: 2016Q2

REPORT INFORMATION
  Report Type: Spontaneous
  Country: FR (occurrence: FR)
  Receive Date: 20160525
  Receipt Date: 20160525
  Transmission Date: 20160815
  Serious: Yes (Other)
  Sender: FDA-Public Use
  Company Number: FR-CIPLA LTD.-2016FR05128

PATIENT

DRUGS (4)
  1. ERLOTINIB [Suspect]
     Active Substance: ERLOTINIB
     Indication: PANCREATIC CARCINOMA STAGE III
     Dosage: 100 MG, QD (INDUCTION CHEMOTHERAPY)
     Route: 048
  2. CAPECITABINE. [Suspect]
     Active Substance: CAPECITABINE
     Indication: PANCREATIC CARCINOMA STAGE III
     Dosage: 800 MG/M2, BID ON DAYS OF RADIATION THERAPY
     Route: 065
  3. GEMCITABINE [Suspect]
     Active Substance: GEMCITABINE\GEMCITABINE HYDROCHLORIDE
     Indication: PANCREATIC CARCINOMA STAGE III
     Dosage: 1000 MG/M2, 30 MINUTE INTRAVENOUS INFUSION WEEKLY FOR 4 CYCLES
     Route: 042
  4. ERLOTINIB [Suspect]
     Active Substance: ERLOTINIB
     Dosage: 150 MG, DAILY (DURING MAINTENANCE THERAPY)
     Route: 065

REACTIONS (1)
  - Adverse event [Unknown]
